FAERS Safety Report 14413883 (Version 1)
Quarter: 2018Q1

REPORT INFORMATION
  Report Type: Spontaneous
  Country: US (occurrence: US)
  Receive Date: 20180117
  Receipt Date: 20180117
  Transmission Date: 20180509
  Serious: No
  Sender: FDA-Public Use
  Company Number: None

PATIENT
  Age: 66 Year
  Sex: Female

DRUGS (1)
  1. IBRANCE [Suspect]
     Active Substance: PALBOCICLIB
     Dosage: FOR 21 DAYS OF A 28 DAY CYCLE
     Route: 048
     Dates: start: 20161118

REACTIONS (6)
  - Constipation [None]
  - Hypoaesthesia [None]
  - Dry skin [None]
  - Abdominal discomfort [None]
  - Chest discomfort [None]
  - Stomatitis [None]

NARRATIVE: CASE EVENT DATE: 20180115
